FAERS Safety Report 9839413 (Version 2)
Quarter: 2014Q1

REPORT INFORMATION
  Report Type: Report from Study
  Country: NL (occurrence: NL)
  Receive Date: 20140123
  Receipt Date: 20140123
  Transmission Date: 20141002
  Serious: Yes (Hospitalization)
  Sender: FDA-Public Use
  Company Number: NL-ABBVIE-11P-114-0842851-00

PATIENT
  Age: 45 Year
  Sex: Female
  Weight: 70 kg

DRUGS (7)
  1. HUMIRA 40 MG/0.8 ML PEN [Suspect]
     Indication: PSORIATIC ARTHROPATHY
     Route: 058
     Dates: start: 20110609
  2. FOLIC ACID [Concomitant]
     Indication: POLYMEDICATION
     Dosage: WEEKLY
     Route: 048
     Dates: start: 200905
  3. HYDROXYCHLOROQUINE [Concomitant]
     Indication: PSORIATIC ARTHROPATHY
     Route: 048
     Dates: start: 200905
  4. METHOTREXATE [Concomitant]
     Indication: PSORIATIC ARTHROPATHY
     Dosage: WEEKLY
     Route: 048
     Dates: start: 200905
  5. CALCIUM CARBONATE W/CHOLECALCIFEROL/SODIUM [Concomitant]
     Indication: OSTEOPOROSIS PROPHYLAXIS
     Dosage: 1.25G/400IE
     Route: 048
     Dates: start: 201105
  6. ESOMEPRAZOL [Concomitant]
     Indication: PROPHYLAXIS AGAINST GASTROINTESTINAL ULCER
     Route: 048
     Dates: start: 200905
  7. SULFASALAZIN [Concomitant]
     Indication: PSORIATIC ARTHROPATHY
     Route: 048
     Dates: start: 200905

REACTIONS (7)
  - Swelling face [Unknown]
  - Weight increased [Unknown]
  - Body fat disorder [Not Recovered/Not Resolved]
  - Pain in extremity [Unknown]
  - Mobility decreased [Unknown]
  - Nodule [Unknown]
  - Hypoaesthesia oral [Unknown]
